FAERS Safety Report 17661154 (Version 1)
Quarter: 2020Q2

REPORT INFORMATION
  Report Type: Spontaneous
  Country: FR (occurrence: FR)
  Receive Date: 20200413
  Receipt Date: 20200413
  Transmission Date: 20200713
  Serious: Yes (Life-Threatening, Hospitalization)
  Sender: FDA-Public Use
  Company Number: FR-ACCORD-178446

PATIENT
  Age: 70 Year
  Sex: Female
  Weight: 63.7 kg

DRUGS (8)
  1. CARBOPLATINE ACCORD [Suspect]
     Active Substance: CARBOPLATIN
     Indication: LUNG SQUAMOUS CELL CARCINOMA METASTATIC
     Dosage: STRENGTH:10 MG/ML,SOLUTION FOR INFUSION LAST DOSE ADMINISTERED ON 30-OCT-2019
     Route: 042
     Dates: start: 20190716
  2. PRIMPERAN [Concomitant]
     Active Substance: METOCLOPRAMIDE HYDROCHLORIDE
     Dosage: STRENGTH:10 MG, SCORED TABLET
  3. PACLITAXEL ACCORD [Suspect]
     Active Substance: PACLITAXEL
     Indication: LUNG SQUAMOUS CELL CARCINOMA METASTATIC
     Dosage: LAST DOSE ADMINISTERED ON 30-OCT-2019
     Route: 042
     Dates: start: 20190716
  4. DUROGESIC [Concomitant]
     Active Substance: FENTANYL
  5. DUPHALAC [Concomitant]
     Active Substance: LACTULOSE
     Dosage: ORAL SOLUTION IN SACHET DOSE
  6. TAHOR [Concomitant]
     Active Substance: ATORVASTATIN CALCIUM
     Dosage: STRENGTH: 10 MG, FILM-COATED TABLET
  7. PLAVIX [Concomitant]
     Active Substance: CLOPIDOGREL BISULFATE
     Dosage: STRENGTH: 75 MG, FILM-COATED TABLET
  8. AROMASINE [Concomitant]
     Active Substance: EXEMESTANE
     Dosage: STRENGTH:25 MG, COATED TABLET

REACTIONS (3)
  - Pancytopenia [Recovered/Resolved]
  - Off label use [Unknown]
  - Febrile neutropenia [Recovered/Resolved]

NARRATIVE: CASE EVENT DATE: 20191001
